FAERS Safety Report 4484021-9 (Version None)
Quarter: 2004Q4

REPORT INFORMATION
  Report Type: 
  Country: None (occurrence: None)
  Receive Date: 20041025
  Receipt Date: 20030605
  Transmission Date: 20050328
  Serious: Yes (Other)
  Sender: FDA-Public Use
  Company Number: US-MERCK-0306USA00723

PATIENT
  Sex: Male

DRUGS (5)
  1. VIOXX [Suspect]
     Route: 048
     Dates: start: 20000406, end: 20000410
  2. VIOXX [Suspect]
     Route: 048
     Dates: start: 20000411, end: 20010101
  3. WYGESIC TABLETS [Concomitant]
     Route: 065
  4. RELAFEN [Concomitant]
     Route: 065
  5. ULTRAM [Concomitant]
     Route: 065

REACTIONS (11)
  - ANGINA PECTORIS [None]
  - BACK PAIN [None]
  - BLOOD PRESSURE INCREASED [None]
  - CEREBROVASCULAR ACCIDENT [None]
  - CONDITION AGGRAVATED [None]
  - CONVULSION [None]
  - COUGH [None]
  - DRUG INEFFECTIVE [None]
  - HYPOAESTHESIA [None]
  - MUSCLE CRAMP [None]
  - PAIN IN EXTREMITY [None]
